FAERS Safety Report 10376045 (Version 1)
Quarter: 2014Q3

REPORT INFORMATION
  Report Type: Spontaneous
  Country: US (occurrence: None)
  Receive Date: 20140804
  Receipt Date: 20140804
  Transmission Date: 20150326
  Serious: Yes (Hospitalization, Other)
  Sender: FDA-Public Use
  Company Number: ADR-2014-01322

PATIENT
  Age: 56 Year
  Sex: Female

DRUGS (2)
  1. BACLOFEN INTRATHECAL [Suspect]
     Active Substance: BACLOFEN
     Indication: MUSCLE SPASTICITY
  2. LIORESAL [Suspect]
     Active Substance: BACLOFEN
     Indication: MUSCLE SPASTICITY

REACTIONS (13)
  - Blood pressure diastolic decreased [None]
  - Faecal incontinence [None]
  - Muscle spasticity [None]
  - Urinary tract infection [None]
  - Malaise [None]
  - Hypertonia [None]
  - Implant site erosion [None]
  - Nerve compression [None]
  - Grip strength decreased [None]
  - Hypoaesthesia [None]
  - Muscular weakness [None]
  - Pneumonia aspiration [None]
  - Enterobacter infection [None]
